FAERS Safety Report 9061239 (Version 1)
Quarter: 2013Q1

REPORT INFORMATION
  Report Type: Spontaneous
  Country: US (occurrence: None)
  Receive Date: 20130208
  Receipt Date: 20130208
  Transmission Date: 20140127
  Serious: Yes (Disabling)
  Sender: FDA-Public Use
  Company Number: None

PATIENT
  Age: 46 Year
  Sex: Female
  Weight: 63.05 kg

DRUGS (1)
  1. ZICAM [Suspect]
     Indication: NASOPHARYNGITIS
     Dosage: ONE SQUIRT IN EACH NOSTRIL
     Route: 045
     Dates: start: 20130204, end: 20130204

REACTIONS (6)
  - Sinus headache [None]
  - Headache [None]
  - Eye pain [None]
  - Neck pain [None]
  - Anosmia [None]
  - Ageusia [None]
